FAERS Safety Report 7035869-8 (Version None)
Quarter: 2010Q4

REPORT INFORMATION
  Report Type: 
  Country: None (occurrence: None)
  Receive Date: 20101008
  Receipt Date: 20100928
  Transmission Date: 20110411
  Serious: Yes (Hospitalization)
  Sender: FDA-Public Use
  Company Number: GXKR2010GB11017

PATIENT
  Age: 60 Year
  Sex: Male
  Weight: 54.2 kg

DRUGS (2)
  1. TAMSULOSIN SODIUM (NGX) [Suspect]
     Indication: URINARY RETENTION
     Dosage: 400 UG, UNK
     Route: 048
     Dates: start: 20100629, end: 20100720
  2. INSULIN [Concomitant]
     Indication: DIABETES MELLITUS
     Dosage: UNK
     Dates: start: 20091101, end: 20100501

REACTIONS (3)
  - HYPERGLYCAEMIA [None]
  - HYPEROSMOLAR STATE [None]
  - WEIGHT DECREASED [None]
